FAERS Safety Report 25649376 (Version 2)
Quarter: 2025Q3

REPORT INFORMATION
  Report Type: Report from Study
  Country: US (occurrence: US)
  Receive Date: 20250806
  Receipt Date: 20250905
  Transmission Date: 20251020
  Serious: Yes (Hospitalization, Other)
  Sender: RECORDATI
  Company Number: US-ORPHANEU-2025005466

PATIENT
  Age: 29 Year
  Sex: Female
  Weight: 81.179 kg

DRUGS (2)
  1. CARBAGLU [Suspect]
     Active Substance: CARGLUMIC ACID
     Indication: Urea cycle disorder
     Dosage: 2600 MG, BID (VIA G-TUBE) IMMEDIATELY BEFORE MEALS OR FEEDINGS (DISSOLVE THIRTEEN 200MG TABLETS IN 2
  2. CARBAGLU [Suspect]
     Active Substance: CARGLUMIC ACID
     Dosage: 2800 MG, BID (DISSOLVE FOURTEEN 200 MG TABLETS IN 2.5 ML OF WATER PER TABLET AND INGEST TWO TIMES PE

REACTIONS (6)
  - Hospitalisation [Recovered/Resolved]
  - Hospitalisation [Unknown]
  - Renal transplant [Recovered/Resolved]
  - Liver transplant [Recovered/Resolved]
  - Pleural effusion [Unknown]
  - Hyperammonaemia [Unknown]

NARRATIVE: CASE EVENT DATE: 20241101
